FAERS Safety Report 8811756 (Version 2)
Quarter: 2012Q4

REPORT INFORMATION
  Report Type: 
  Country: FR (occurrence: FR)
  Receive Date: 20120927
  Receipt Date: 20121127
  Transmission Date: 20130627
  Serious: Yes (Hospitalization, Other)
  Sender: FDA-Public Use
  Company Number: FR-ASTRAZENECA-2012SE73002

PATIENT
  Age: 23546 Day
  Sex: Female

DRUGS (14)
  1. XEROQUEL [Suspect]
     Indication: BIPOLAR DISORDER
     Route: 048
     Dates: start: 20120706, end: 20120901
  2. OMPEPRAZOL [Concomitant]
     Route: 065
  3. MOTILIUM [Concomitant]
     Route: 048
  4. TRIMEBUTINE [Concomitant]
  5. PIASCLEDINE [Concomitant]
  6. ACEBUTOLOL [Concomitant]
  7. TAHOR [Concomitant]
  8. XANAX [Concomitant]
  9. LYRICA [Concomitant]
  10. SPASFON [Concomitant]
  11. PRIMPERAN [Concomitant]
  12. TIORFON [Concomitant]
  13. DEPAKOTE [Concomitant]
  14. EFFEXOR [Concomitant]
     Dosage: 75 mg every day, MAXIUM 75 MG THREE TIMES PER DAY

REACTIONS (5)
  - Drug-induced liver injury [Recovered/Resolved]
  - Diarrhoea [Recovered/Resolved]
  - Malaise [Recovered/Resolved]
  - Thrombocytopenia [Recovered/Resolved]
  - Syncope [Recovered/Resolved]
